FAERS Safety Report 4433702-1 (Version None)
Quarter: 2004Q3

REPORT INFORMATION
  Report Type: 
  Country: None (occurrence: None)
  Receive Date: 20040824
  Receipt Date: 20040810
  Transmission Date: 20050211
  Serious: Yes (Hospitalization, Other)
  Sender: FDA-Public Use
  Company Number: USA-2002-0002154

PATIENT
  Age: 36 Year
  Sex: Male
  Weight: 125.6 kg

DRUGS (14)
  1. OXYCONTIN [Suspect]
     Indication: PAIN
     Dosage: 20 MG ORAL   SEE TEXT
     Route: 048
     Dates: start: 19990801
  2. OXYCONTIN [Suspect]
     Indication: PAIN
     Dosage: 40 MG ORAL   SEE TEXT
     Route: 048
  3. LORTAB [Concomitant]
  4. LORCET-HD [Concomitant]
  5. DARVOCET-N 100 [Concomitant]
  6. AXID [Concomitant]
  7. VIOXX [Concomitant]
  8. DESYREL [Concomitant]
  9. SOMA [Concomitant]
  10. CELEXA [Concomitant]
  11. EFFEXOR [Concomitant]
  12. BUSPAR [Concomitant]
  13. ZANAFLEX [Concomitant]
  14. PROZAC [Concomitant]

REACTIONS (38)
  - ACUTE LYMPHOCYTIC LEUKAEMIA [None]
  - ANALGESIC EFFECT [None]
  - ANXIETY [None]
  - ASTHENIA [None]
  - BACK PAIN [None]
  - CHILLS [None]
  - CYST [None]
  - DECREASED APPETITE [None]
  - DEPRESSION [None]
  - DIZZINESS [None]
  - DIZZINESS POSTURAL [None]
  - DRUG DEPENDENCE [None]
  - DRUG INEFFECTIVE [None]
  - DRUG WITHDRAWAL SYNDROME [None]
  - DYSPNOEA [None]
  - FATIGUE [None]
  - GAIT DISTURBANCE [None]
  - GASTROOESOPHAGEAL REFLUX DISEASE [None]
  - GROIN PAIN [None]
  - HEPATIC ENZYME INCREASED [None]
  - HICCUPS [None]
  - HYPOAESTHESIA [None]
  - HYPOAESTHESIA ORAL [None]
  - INFLUENZA [None]
  - LIVER FUNCTION TEST ABNORMAL [None]
  - LOSS OF CONSCIOUSNESS [None]
  - NIGHT SWEATS [None]
  - ORAL CANDIDIASIS [None]
  - PAIN [None]
  - PAIN IN EXTREMITY [None]
  - PANIC ATTACK [None]
  - PNEUMONIA [None]
  - PYREXIA [None]
  - STRESS SYMPTOMS [None]
  - SUICIDAL IDEATION [None]
  - TACHYCARDIA [None]
  - WEIGHT DECREASED [None]
  - WHITE BLOOD CELL COUNT INCREASED [None]
